FAERS Safety Report 9530211 (Version 1)
Quarter: 2013Q3

REPORT INFORMATION
  Report Type: Spontaneous
  Country: FR (occurrence: FR)
  Receive Date: 20130917
  Receipt Date: 20130917
  Transmission Date: 20140515
  Serious: Yes (Other)
  Sender: FDA-Public Use
  Company Number: FR-B.I. PHARMACEUTICALS,INC./RIDGEFIELD-2013-FF-02298FF

PATIENT
  Sex: Female

DRUGS (2)
  1. SIFROL [Suspect]
     Indication: PARKINSON^S DISEASE
     Route: 048
     Dates: start: 200606
  2. MODOPAR [Suspect]
     Indication: PARKINSON^S DISEASE
     Route: 048
     Dates: start: 200805

REACTIONS (4)
  - Impulse-control disorder [Not Recovered/Not Resolved]
  - Compulsive shopping [Not Recovered/Not Resolved]
  - Eating disorder [Not Recovered/Not Resolved]
  - Stereotypy [Not Recovered/Not Resolved]
